FAERS Safety Report 13569861 (Version 2)
Quarter: 2017Q2

REPORT INFORMATION
  Report Type: Spontaneous
  Country: US (occurrence: US)
  Receive Date: 20170522
  Receipt Date: 20170530
  Transmission Date: 20170830
  Serious: Yes (Other)
  Sender: FDA-Public Use
  Company Number: US-SUNOVION-2017SUN002074

PATIENT
  Sex: Female
  Weight: 95.24 kg

DRUGS (3)
  1. LATUDA [Suspect]
     Active Substance: LURASIDONE HYDROCHLORIDE
     Indication: BIPOLAR I DISORDER
     Dosage: 60 MG, QD
     Route: 048
     Dates: start: 201602, end: 201701
  2. XANAX [Concomitant]
     Active Substance: ALPRAZOLAM
     Dosage: 2 MG, BID
     Route: 048
  3. LIPITOR [Concomitant]
     Active Substance: ATORVASTATIN CALCIUM
     Dosage: 80 MG, QD
     Route: 048

REACTIONS (7)
  - Depression [Unknown]
  - Asthenia [Unknown]
  - Mania [Unknown]
  - Fatigue [Unknown]
  - Disturbance in attention [Unknown]
  - Suicidal ideation [Unknown]
  - Poor personal hygiene [Unknown]
